FAERS Safety Report 8791268 (Version 1)
Quarter: 2012Q4

REPORT INFORMATION
  Report Type: Spontaneous
  Country: FR (occurrence: None)
  Receive Date: 20120912
  Receipt Date: 20120912
  Transmission Date: 20130627
  Serious: Yes (Hospitalization)
  Sender: FDA-Public Use
  Company Number: DSA_59507_2012

PATIENT

DRUGS (3)
  1. FLAGYL [Suspect]
     Indication: VAGINAL INFECTION
     Route: 067
     Dates: start: 20111024, end: 20111103
  2. BACTRIM [Suspect]
     Indication: VAGINAL INFECTION
     Route: 048
     Dates: start: 20111024, end: 20111103
  3. DIANE [Concomitant]

REACTIONS (2)
  - Stevens-Johnson syndrome [None]
  - Influenza like illness [None]
